FAERS Safety Report 9239352 (Version 1)
Quarter: 2013Q2

REPORT INFORMATION
  Report Type: Spontaneous
  Country: US (occurrence: US)
  Receive Date: 20130418
  Receipt Date: 20130418
  Transmission Date: 20140414
  Serious: Yes (Death)
  Sender: FDA-Public Use
  Company Number: US-COVIDIEN/TYCO HEALTHCARE/MALLINCKRODT-T201203607

PATIENT
  Age: 23 Year
  Sex: Female

DRUGS (3)
  1. METHADONE [Suspect]
     Dosage: 10 MG, UNK
     Dates: start: 201005
  2. OXYCODONE [Suspect]
     Dosage: 30 MG, UNK
     Dates: start: 201006
  3. METHAMPHETAMINE [Suspect]

REACTIONS (3)
  - Overdose [Fatal]
  - Drug dependence [Unknown]
  - Drug diversion [Unknown]
